FAERS Safety Report 17331938 (Version 3)
Quarter: 2021Q3

REPORT INFORMATION
  Report Type: Spontaneous
  Country: US (occurrence: US)
  Receive Date: 20200127
  Receipt Date: 20210820
  Transmission Date: 20211014
  Serious: No
  Sender: FDA-Public Use
  Company Number: US-ARBOR PHARMACEUTICALS, LLC-US-2019ARB001637

PATIENT
  Sex: Female

DRUGS (5)
  1. TRIPTODUR [Suspect]
     Active Substance: TRIPTORELIN
     Dosage: UNK, SINGLE
     Route: 030
     Dates: start: 20201012, end: 20201012
  2. TRIPTODUR [Suspect]
     Active Substance: TRIPTORELIN
  3. TRIPTODUR [Suspect]
     Active Substance: TRIPTORELIN
  4. TRIPTODUR [Suspect]
     Active Substance: TRIPTORELIN
     Indication: PRODUCT USED FOR UNKNOWN INDICATION
     Dosage: UNK, SINGLE
     Route: 030
     Dates: start: 20190128, end: 20190128
  5. TRIPTODUR [Suspect]
     Active Substance: TRIPTORELIN
     Dosage: UNK, SINGLE
     Route: 030

REACTIONS (4)
  - Behaviour disorder [Unknown]
  - Mood altered [Unknown]
  - Musculoskeletal stiffness [Not Recovered/Not Resolved]
  - Pain in extremity [Unknown]

NARRATIVE: CASE EVENT DATE: 2019
